FAERS Safety Report 8283098-2 (Version None)
Quarter: 2012Q2

REPORT INFORMATION
  Report Type: 
  Country: None (occurrence: None)
  Receive Date: 20120413
  Receipt Date: 20120410
  Transmission Date: 20120825
  Serious: Yes (Congenital Anomaly)
  Sender: FDA-Public Use
  Company Number: US-GLAXOSMITHKLINE-A0851844A

PATIENT
  Sex: Female

DRUGS (5)
  1. PAXIL [Suspect]
     Indication: DEPRESSION
     Dosage: 20MG PER DAY
     Route: 064
     Dates: start: 20020501, end: 20030412
  2. ALCOHOL [Concomitant]
     Dates: start: 20030103, end: 20030103
  3. XANAX [Concomitant]
     Dosage: 14TAB SINGLE DOSE
     Route: 048
     Dates: start: 20030103, end: 20030103
  4. ADDERALL 5 [Concomitant]
     Dates: start: 20030103, end: 20030103
  5. VITAMIN AND MINERAL PRENATAL SUPPLEMENT W/ FOLIC ACID CAP [Concomitant]

REACTIONS (3)
  - CARDIAC MURMUR [None]
  - FOETAL EXPOSURE DURING PREGNANCY [None]
  - BICUSPID AORTIC VALVE [None]
